FAERS Safety Report 9499018 (Version 3)
Quarter: 2013Q3

REPORT INFORMATION
  Report Type: Spontaneous
  Country: US (occurrence: US)
  Receive Date: 20130904
  Receipt Date: 20130911
  Transmission Date: 20140515
  Serious: Yes (Death, Hospitalization)
  Sender: FDA-Public Use
  Company Number: US-BAXTER-2013BAX034231

PATIENT
  Age: 4 Year
  Sex: Female

DRUGS (1)
  1. DIANEAL LOW CALCIUM [Suspect]
     Indication: PERITONEAL DIALYSIS
     Route: 033
     Dates: start: 20130206, end: 20130831

REACTIONS (3)
  - Respiratory disorder [Fatal]
  - Sepsis [Recovering/Resolving]
  - Tracheostomy malfunction [Recovering/Resolving]
